FAERS Safety Report 11827955 (Version 1)
Quarter: 2015Q4

REPORT INFORMATION
  Report Type: Spontaneous
  Country: US (occurrence: US)
  Receive Date: 20151211
  Receipt Date: 20151211
  Transmission Date: 20160305
  Serious: No
  Sender: FDA-Public Use
  Company Number: US-BAUSCH-BL-2015-002447

PATIENT
  Age: 50 Year
  Sex: Female

DRUGS (3)
  1. SERTRALINE [Suspect]
     Active Substance: SERTRALINE HYDROCHLORIDE
     Indication: PRODUCT USED FOR UNKNOWN INDICATION
  2. XENAZINE [Suspect]
     Active Substance: TETRABENAZINE
     Indication: TARDIVE DYSKINESIA
     Dosage: FOR ONE WEEK
     Route: 048
     Dates: start: 201412
  3. XENAZINE [Suspect]
     Active Substance: TETRABENAZINE
     Dosage: FOR ONE WEEK
     Route: 048
     Dates: start: 201412

REACTIONS (3)
  - Off label use [Recovered/Resolved]
  - Heart rate increased [Recovering/Resolving]
  - Blood pressure increased [Recovering/Resolving]

NARRATIVE: CASE EVENT DATE: 201412
